FAERS Safety Report 4383397-0 (Version None)
Quarter: 2004Q2

REPORT INFORMATION
  Report Type: 
  Country: None (occurrence: None)
  Receive Date: 20040623
  Receipt Date: 20040603
  Transmission Date: 20050107
  Serious: Yes (Other)
  Sender: FDA-Public Use
  Company Number: PHRM2004FR02012

PATIENT
  Sex: Female

DRUGS (1)
  1. NITRIDERM TTS [Suspect]
     Dosage: 5 MG/24H
     Route: 062

REACTIONS (3)
  - MALAISE [None]
  - PHARMACEUTICAL PRODUCT COMPLAINT [None]
  - SYNCOPE VASOVAGAL [None]
